FAERS Safety Report 9841476 (Version 2)
Quarter: 2014Q1

REPORT INFORMATION
  Report Type: Spontaneous
  Country: US (occurrence: None)
  Receive Date: 20131223
  Receipt Date: 20140228
  Transmission Date: 20141002
  Serious: No
  Sender: FDA-Public Use
  Company Number: 219557LEO

PATIENT
  Age: 52 Year
  Sex: Female

DRUGS (1)
  1. PICATO (0.015%, GEL) [Suspect]
     Indication: ACTINIC KERATOSIS
     Route: 061
     Dates: start: 20121116, end: 20121117

REACTIONS (9)
  - Application site pain [None]
  - Application site pain [None]
  - Application site vesicles [None]
  - Drug administered at inappropriate site [None]
  - Application site swelling [None]
  - Haemorrhage [None]
  - Scar [None]
  - Application site erythema [None]
  - Wrong technique in drug usage process [None]
